FAERS Safety Report 5819568-3 (Version None)
Quarter: 2008Q3

REPORT INFORMATION
  Report Type: 
  Country: None (occurrence: None)
  Receive Date: 20080723
  Receipt Date: 20080711
  Transmission Date: 20090109
  Serious: Yes (Hospitalization, Other)
  Sender: FDA-Public Use
  Company Number: US-BAYER-BG-2007-002385

PATIENT
  Age: 62 Year
  Sex: Female
  Weight: 61 kg

DRUGS (10)
  1. CAMPATH [Suspect]
     Indication: CHRONIC LYMPHOCYTIC LEUKAEMIA
     Route: 042
     Dates: start: 20060508, end: 20061013
  2. FLUDARABINE PHOSPHATE [Suspect]
     Indication: CHRONIC LYMPHOCYTIC LEUKAEMIA
     Route: 042
     Dates: start: 20060508, end: 20061013
  3. ATENOLOL [Concomitant]
  4. HAEMODEX [Concomitant]
     Indication: NEUROPATHY PERIPHERAL
     Route: 042
  5. RINGER LACTATE ^SALVIA^ [Concomitant]
     Indication: NEUROPATHY PERIPHERAL
     Route: 042
  6. AXETIN [Concomitant]
     Dates: start: 20070315, end: 20070402
  7. BISEPTOL [Concomitant]
     Dates: start: 20070315, end: 20070402
  8. MYCOSTATIN [Concomitant]
  9. QUAMATEL [Concomitant]
     Dates: start: 20070315, end: 20070402
  10. TERTENSIF [Concomitant]
     Dates: start: 20020101

REACTIONS (1)
  - NEUROPATHY PERIPHERAL [None]
